FAERS Safety Report 20741674 (Version 1)
Quarter: 2022Q2

REPORT INFORMATION
  Report Type: Report from Study
  Country: DE (occurrence: DE)
  Receive Date: 20220422
  Receipt Date: 20220422
  Transmission Date: 20220720
  Serious: Yes (Hospitalization, Other)
  Sender: FDA-Public Use
  Company Number: DE-BRISTOL-MYERS SQUIBB COMPANY-2022-015844

PATIENT
  Age: 81 Year
  Sex: Female
  Weight: 53.3 kg

DRUGS (2)
  1. ENASIDENIB [Suspect]
     Active Substance: ENASIDENIB
     Indication: Myelodysplastic syndrome
     Route: 065
     Dates: start: 20220128, end: 20220322
  2. LEVOFLOXACIN [Concomitant]
     Active Substance: LEVOFLOXACIN
     Indication: Product used for unknown indication
     Route: 048
     Dates: start: 20220315, end: 20220322

REACTIONS (2)
  - General physical health deterioration [Not Recovered/Not Resolved]
  - Differentiation syndrome [Not Recovered/Not Resolved]

NARRATIVE: CASE EVENT DATE: 20220322
